FAERS Safety Report 10057110 (Version 1)
Quarter: 2014Q2

REPORT INFORMATION
  Report Type: Spontaneous
  Country: US (occurrence: US)
  Receive Date: 20140403
  Receipt Date: 20140403
  Transmission Date: 20141212
  Serious: Yes (Hospitalization)
  Sender: FDA-Public Use
  Company Number: US-B.I. PHARMACEUTICALS,INC./RIDGEFIELD-2014-BI-14227BP

PATIENT
  Sex: Male

DRUGS (2)
  1. SPIRIVA [Suspect]
     Indication: PRODUCT USED FOR UNKNOWN INDICATION
     Dosage: 18 MCG
     Route: 055
  2. SPIRIVA [Suspect]
     Dosage: 18 MCG
     Route: 048

REACTIONS (3)
  - Yellow skin [Recovered/Resolved]
  - Incorrect route of drug administration [Recovered/Resolved]
  - Incorrect route of drug administration [Recovered/Resolved]
